FAERS Safety Report 4712401-2 (Version None)
Quarter: 2005Q3

REPORT INFORMATION
  Report Type: 
  Country: None (occurrence: None)
  Receive Date: 20050711
  Receipt Date: 20050628
  Transmission Date: 20060218
  Serious: Yes (Life-Threatening, Hospitalization, Other)
  Sender: FDA-Public Use
  Company Number: HQWYE810429JUN05

PATIENT
  Age: 17 Year
  Sex: Male

DRUGS (2)
  1. ADVIL [Suspect]
     Indication: PAIN
     Dosage: ORAL
     Route: 048
  2. FLIXOTIDE (FLUTICASONE PROPIONATE) [Concomitant]

REACTIONS (5)
  - AGITATION [None]
  - ASTHMA [None]
  - CONDITION AGGRAVATED [None]
  - SKIN DISCOLOURATION [None]
  - STATUS ASTHMATICUS [None]
